FAERS Safety Report 10240001 (Version 3)
Quarter: 2014Q2

REPORT INFORMATION
  Report Type: Spontaneous
  Country: US (occurrence: US)
  Receive Date: 20140616
  Receipt Date: 20140623
  Transmission Date: 20141212
  Serious: No
  Sender: FDA-Public Use
  Company Number: US-009507513-1406USA007475

PATIENT
  Sex: Female

DRUGS (1)
  1. NEXPLANON [Suspect]
     Route: 059

REACTIONS (2)
  - Inappropriate schedule of drug administration [Unknown]
  - Exposure during pregnancy [Unknown]
